FAERS Safety Report 8067336-7 (Version None)
Quarter: 2012Q1

REPORT INFORMATION
  Report Type: 
  Country: None (occurrence: None)
  Receive Date: 20120124
  Receipt Date: 20120117
  Transmission Date: 20120608
  Serious: Yes (Other)
  Sender: FDA-Public Use
  Company Number: JP-GLAXOSMITHKLINE-B0776509A

PATIENT
  Sex: Female

DRUGS (7)
  1. ASPIRIN [Concomitant]
     Dosage: 100MG PER DAY
     Route: 048
     Dates: start: 20081224
  2. SPIRONOLACTONE [Concomitant]
     Indication: POLYURIA
     Dosage: 25MG PER DAY
     Route: 048
     Dates: start: 20081224, end: 20111228
  3. GLIMEPIRIDE [Concomitant]
     Indication: DIABETES MELLITUS
     Dosage: 1MG PER DAY
     Route: 048
     Dates: start: 20081224, end: 20111228
  4. TIAPRIDUM [Concomitant]
     Indication: AGITATION
     Dosage: 75MG PER DAY
     Route: 048
     Dates: start: 20081224, end: 20111228
  5. GRAMALIL [Concomitant]
     Route: 048
  6. LAMICTAL [Suspect]
     Indication: MANIA
     Dosage: 25MG PER DAY
     Route: 048
     Dates: start: 20111202, end: 20111208
  7. LAMICTAL [Suspect]
     Dosage: 50MG PER DAY
     Route: 048
     Dates: start: 20111209, end: 20111222

REACTIONS (13)
  - LIP EROSION [None]
  - ERYTHEMA MULTIFORME [None]
  - ALANINE AMINOTRANSFERASE INCREASED [None]
  - ARTHRALGIA [None]
  - BLOOD LACTATE DEHYDROGENASE INCREASED [None]
  - RASH [None]
  - PYREXIA [None]
  - ERYTHEMA [None]
  - SCAB [None]
  - LIVER DISORDER [None]
  - ASPARTATE AMINOTRANSFERASE INCREASED [None]
  - PAPULE [None]
  - DRUG ERUPTION [None]
